FAERS Safety Report 4603371-6 (Version None)
Quarter: 2005Q1

REPORT INFORMATION
  Report Type: 
  Country: None (occurrence: None)
  Receive Date: 20050308
  Receipt Date: 20050223
  Transmission Date: 20050727
  Serious: Yes (Hospitalization)
  Sender: FDA-Public Use
  Company Number: 2005037052

PATIENT
  Age: 58 Year
  Sex: Female

DRUGS (4)
  1. ZOLOFT [Suspect]
     Indication: FIBROMYALGIA
     Dosage: 50 M G (50 MG, 1 IN 1 D), ORAL
     Route: 048
     Dates: start: 20010527, end: 20020709
  2. CLONAZEPAM [Concomitant]
  3. KLIOGEST    NOVO INDUSTRI  (ESTRADIOL, NORETHISTERONE ACETATE) [Concomitant]
  4. PROPRANOLOL [Concomitant]

REACTIONS (6)
  - CONTUSION [None]
  - DIFFICULTY IN WALKING [None]
  - HYPOKINESIA [None]
  - MUSCULAR WEAKNESS [None]
  - MYALGIA [None]
  - TENDON DISORDER [None]
